FAERS Safety Report 15151027 (Version 3)
Quarter: 2020Q3

REPORT INFORMATION
  Report Type: Spontaneous
  Country: US (occurrence: US)
  Receive Date: 20180716
  Receipt Date: 20200706
  Transmission Date: 20201102
  Serious: No
  Sender: FDA-Public Use
  Company Number: US-SA-2018SA185934

PATIENT

DRUGS (2)
  1. DUPIXENT [Suspect]
     Active Substance: DUPILUMAB
     Indication: DERMATITIS ATOPIC
  2. DUPIXENT [Suspect]
     Active Substance: DUPILUMAB
     Indication: DERMATITIS
     Dosage: 300 MG, QOW
     Route: 058
     Dates: start: 20180315

REACTIONS (5)
  - Erythema [Unknown]
  - Dry skin [Unknown]
  - Skin irritation [Unknown]
  - Conjunctivitis [Unknown]
  - Dry skin [Unknown]

NARRATIVE: CASE EVENT DATE: 20180615
